FAERS Safety Report 23430791 (Version 3)
Quarter: 2024Q1

REPORT INFORMATION
  Report Type: Report from Study
  Country: JP (occurrence: JP)
  Receive Date: 20240123
  Receipt Date: 20240321
  Transmission Date: 20240409
  Serious: Yes (Hospitalization)
  Sender: FDA-Public Use
  Company Number: JP-GLAXOSMITHKLINE-JP2019JPN087136

PATIENT

DRUGS (35)
  1. MEPOLIZUMAB [Suspect]
     Active Substance: MEPOLIZUMAB
     Indication: Eosinophilic granulomatosis with polyangiitis
     Dosage: 300 MG
     Route: 058
     Dates: start: 20181105, end: 20181105
  2. MEPOLIZUMAB [Suspect]
     Active Substance: MEPOLIZUMAB
     Dosage: 300 MG
     Route: 058
     Dates: start: 20181205, end: 20181205
  3. MEPOLIZUMAB [Suspect]
     Active Substance: MEPOLIZUMAB
     Dosage: 300 MG
     Route: 058
     Dates: start: 20190109, end: 20190109
  4. MEPOLIZUMAB [Suspect]
     Active Substance: MEPOLIZUMAB
     Dosage: 300 MG
     Route: 058
     Dates: start: 20190206, end: 20190206
  5. MEPOLIZUMAB [Suspect]
     Active Substance: MEPOLIZUMAB
     Dosage: 300 MG
     Route: 058
     Dates: start: 20190306, end: 20190306
  6. MEPOLIZUMAB [Suspect]
     Active Substance: MEPOLIZUMAB
     Dosage: 300 MG
     Route: 058
     Dates: start: 20190403, end: 20190403
  7. MEPOLIZUMAB [Suspect]
     Active Substance: MEPOLIZUMAB
     Dosage: 300 MG
     Route: 058
     Dates: start: 20190501, end: 20190501
  8. MEPOLIZUMAB [Suspect]
     Active Substance: MEPOLIZUMAB
     Dosage: 300 MG
     Route: 058
     Dates: start: 20190605, end: 20190605
  9. MEPOLIZUMAB [Suspect]
     Active Substance: MEPOLIZUMAB
     Dosage: 300 MG
     Route: 058
     Dates: start: 20190703, end: 20190703
  10. MEPOLIZUMAB [Suspect]
     Active Substance: MEPOLIZUMAB
     Dosage: 300 MG
     Route: 058
     Dates: start: 20190807, end: 20190807
  11. MEPOLIZUMAB [Suspect]
     Active Substance: MEPOLIZUMAB
     Dosage: 300 MG
     Route: 058
     Dates: start: 20190904, end: 20190904
  12. MEPOLIZUMAB [Suspect]
     Active Substance: MEPOLIZUMAB
     Dosage: 300 MG
     Route: 058
     Dates: start: 20191002, end: 20191002
  13. MEPOLIZUMAB [Suspect]
     Active Substance: MEPOLIZUMAB
     Dosage: 300 MG
     Route: 058
     Dates: start: 20191106, end: 20191106
  14. MEPOLIZUMAB [Suspect]
     Active Substance: MEPOLIZUMAB
     Dosage: 300 MG
     Route: 058
     Dates: start: 20191204, end: 20191204
  15. MEPOLIZUMAB [Suspect]
     Active Substance: MEPOLIZUMAB
     Dosage: 300 MG
     Route: 058
     Dates: start: 20200108, end: 20200108
  16. MEPOLIZUMAB [Suspect]
     Active Substance: MEPOLIZUMAB
     Dosage: 300 MG
     Route: 058
     Dates: start: 20200205, end: 20200205
  17. PREDONINE [Concomitant]
     Active Substance: PREDNISOLONE
     Indication: Eosinophilic granulomatosis with polyangiitis
     Dosage: 5 MG, QD
     Dates: end: 20200108
  18. PREDONINE [Concomitant]
     Active Substance: PREDNISOLONE
     Dosage: 25 MG, QD
     Dates: start: 20200109, end: 20200128
  19. PREDONINE [Concomitant]
     Active Substance: PREDNISOLONE
     Dosage: 20 MG, QD
     Dates: start: 20200129, end: 20200211
  20. PREDONINE [Concomitant]
     Active Substance: PREDNISOLONE
     Dosage: 17.5 MG, QD
     Dates: start: 20200212, end: 20200225
  21. PREDONINE [Concomitant]
     Active Substance: PREDNISOLONE
     Dosage: 15 MG, QD
     Dates: start: 20200226, end: 20200310
  22. CELLCEPT [Concomitant]
     Active Substance: MYCOPHENOLATE MOFETIL
     Dosage: 1000 MG, QD
     Dates: end: 20190430
  23. CELLCEPT [Concomitant]
     Active Substance: MYCOPHENOLATE MOFETIL
     Dosage: 1500 MG, QD
     Dates: start: 20190501
  24. GASTER [Concomitant]
     Active Substance: FAMOTIDINE
     Indication: Prophylaxis
     Dosage: UNK
  25. ALFAROL [Concomitant]
     Active Substance: ALFACALCIDOL
     Indication: Prophylaxis
     Dosage: UNK
  26. LOXOPROFEN SODIUM [Concomitant]
     Active Substance: LOXOPROFEN SODIUM
     Indication: Eosinophilic granulomatosis with polyangiitis
     Dosage: UNK
  27. ROXITHROMYCIN [Concomitant]
     Active Substance: ROXITHROMYCIN
     Indication: Eosinophilic granulomatosis with polyangiitis
     Dosage: UNK
  28. DESLORATADINE [Concomitant]
     Active Substance: DESLORATADINE
     Indication: Eosinophilic granulomatosis with polyangiitis
     Dosage: UNK
  29. FLUTICASONE FUROATE [Concomitant]
     Active Substance: FLUTICASONE FUROATE
     Indication: Eosinophilic granulomatosis with polyangiitis
     Dosage: 110 ?G, 1D
     Dates: end: 20190430
  30. FLUTICASONE FUROATE [Concomitant]
     Active Substance: FLUTICASONE FUROATE
     Dosage: 55 ?G, QD
     Dates: start: 20190501, end: 20201210
  31. CLARITIN REDITABS [Concomitant]
     Active Substance: LORATADINE
     Indication: Eosinophilic granulomatosis with polyangiitis
     Dosage: UNK
  32. CELECOXIB [Concomitant]
     Active Substance: CELECOXIB
     Indication: Eosinophilic granulomatosis with polyangiitis
     Dosage: UNK
  33. CLARITHROMYCIN [Concomitant]
     Active Substance: CLARITHROMYCIN
     Indication: Eosinophilic granulomatosis with polyangiitis
     Dosage: UNK
  34. MONTELUKAST SODIUM [Concomitant]
     Active Substance: MONTELUKAST SODIUM
     Indication: Eosinophilic granulomatosis with polyangiitis
     Dosage: UNK
     Dates: start: 20190813, end: 20190819
  35. MONTELUKAST SODIUM [Concomitant]
     Active Substance: MONTELUKAST SODIUM
     Indication: Asthma

REACTIONS (2)
  - Asthma [Recovered/Resolved]
  - Asthma [Recovered/Resolved]

NARRATIVE: CASE EVENT DATE: 20190124
